FAERS Safety Report 8409197-X (Version None)
Quarter: 2012Q2

REPORT INFORMATION
  Report Type: 
  Country: None (occurrence: None)
  Receive Date: 20120604
  Receipt Date: 20120531
  Transmission Date: 20120825
  Serious: Yes (Death)
  Sender: FDA-Public Use
  Company Number: ES-ROCHE-1074171

PATIENT
  Age: 68 Year
  Sex: Female

DRUGS (4)
  1. LEUCOVORIN CALCIUM [Concomitant]
     Indication: COLON CANCER METASTATIC
     Route: 042
     Dates: start: 20120409, end: 20120409
  2. IRINOTECAN HCL [Concomitant]
     Indication: COLON CANCER METASTATIC
     Route: 042
     Dates: start: 20120409, end: 20120409
  3. FLUOROURACIL [Concomitant]
     Indication: COLON CANCER METASTATIC
     Route: 042
     Dates: start: 20120409, end: 20120409
  4. AVASTIN [Suspect]
     Indication: COLON CANCER METASTATIC
     Route: 042
     Dates: start: 20120409, end: 20120409

REACTIONS (5)
  - NEUTROPENIA [None]
  - NECROTISING FASCIITIS [None]
  - ANAEMIA [None]
  - ABDOMINAL ABSCESS [None]
  - DUODENAL FISTULA [None]
